FAERS Safety Report 9706012 (Version 1)
Quarter: 2013Q4

REPORT INFORMATION
  Report Type: Report from Study
  Country: US (occurrence: US)
  Receive Date: 20131122
  Receipt Date: 20131122
  Transmission Date: 20140711
  Serious: Yes (Hospitalization, Other)
  Sender: FDA-Public Use
  Company Number: US-ABBVIE-13P-163-1169953-00

PATIENT
  Age: 34 Year
  Sex: Male

DRUGS (4)
  1. HUMIRA [Suspect]
     Indication: CROHN^S DISEASE
     Dates: start: 20130801
  2. VICODIN [Concomitant]
     Indication: PAIN
  3. UNKNOWN MEDICATIONS [Concomitant]
     Indication: GASTROINTESTINAL DISORDER
     Dates: start: 201310
  4. UNKNOWN MEDICATIONS [Concomitant]
     Indication: GASTROOESOPHAGEAL REFLUX DISEASE

REACTIONS (3)
  - Ileus [Recovering/Resolving]
  - Abdominal pain [Unknown]
  - Crohn^s disease [Unknown]
